FAERS Safety Report 19094819 (Version 1)
Quarter: 2021Q2

REPORT INFORMATION
  Report Type: Other
  Country: GB (occurrence: GB)
  Receive Date: 20210406
  Receipt Date: 20210406
  Transmission Date: 20210717
  Serious: Yes (Other)
  Sender: FDA-Public Use
  Company Number: GB-CELLTRION INC.-2021GB004203

PATIENT

DRUGS (3)
  1. REMSIMA [Suspect]
     Active Substance: INFLIXIMAB
     Indication: COLITIS ULCERATIVE
     Dosage: 250 MG (PHARMACEUTICAL DOSE FORM:124)
     Route: 042
     Dates: start: 20200131, end: 20201009
  2. DESOGESTREL [Concomitant]
     Active Substance: DESOGESTREL
  3. MESALAZINE [Concomitant]
     Active Substance: MESALAMINE

REACTIONS (2)
  - Urticaria [Recovered/Resolved]
  - Overdose [Unknown]

NARRATIVE: CASE EVENT DATE: 20200814
